FAERS Safety Report 25140834 (Version 1)
Quarter: 2025Q2

REPORT INFORMATION
  Report Type: Spontaneous
  Country: US (occurrence: None)
  Receive Date: 20250328
  Receipt Date: 20250328
  Transmission Date: 20250717
  Serious: Yes (Hospitalization, Disabling)
  Sender: FDA-CTU
  Company Number: None

PATIENT
  Age: 73 Year
  Sex: Male

DRUGS (1)
  1. COLLAGENASE SANTYL [Suspect]
     Active Substance: COLLAGENASE CLOSTRIDIUM HISTOLYTICUM
     Indication: Wound
     Dosage: 1 NICKEL THICK APPLICATION  DAILY TOPICAL?
     Route: 061
     Dates: start: 20250307, end: 20250311

REACTIONS (2)
  - Localised infection [None]
  - Toe amputation [None]

NARRATIVE: CASE EVENT DATE: 20250311
